FAERS Safety Report 6655763-1 (Version None)
Quarter: 2010Q1

REPORT INFORMATION
  Report Type: 
  Country: None (occurrence: None)
  Receive Date: 20100329
  Receipt Date: 20100323
  Transmission Date: 20100710
  Serious: Yes (Hospitalization)
  Sender: FDA-Public Use
  Company Number: DE-ROCHE-690207

PATIENT
  Sex: Female
  Weight: 75 kg

DRUGS (4)
  1. TRASTUZUMAB [Suspect]
     Indication: BREAST CANCER
     Dosage: LAST DOSE PRIOR TO SAE 19 FEB 2010. DOSAGE FORM: VIALS TOTAL DOSE: 450 MG
     Route: 042
     Dates: start: 20091013
  2. BEVACIZUMAB [Suspect]
     Indication: BREAST CANCER
     Dosage: LAST DOSE PRIOR TO SAE 19 FEB 2010. DOSAGE FORM: VIALS. TOTAL DOSE: 1125 MG
     Route: 042
     Dates: start: 20091013
  3. DOCETAXEL [Suspect]
     Indication: BREAST CANCER
     Dosage: LAST DOSE PRIOR TO SAE 19 FEB 2010. DOSAGE FORM: VIALS. TOTAL DOSE: 131 MG.
     Route: 042
     Dates: start: 20091013
  4. CARBOPLATIN [Suspect]
     Indication: BREAST CANCER
     Dosage: FORM: VIALS, LAST DOSE PRIOR TO SAE: 19 FEB 2010. TOTAL DOSE: 810 MG, DOSSIMG AMOUNT:110.0000 AUC
     Route: 042
     Dates: start: 20091013

REACTIONS (1)
  - THROMBOCYTOPENIA [None]
